FAERS Safety Report 24731692 (Version 2)
Quarter: 2025Q1

REPORT INFORMATION
  Report Type: Spontaneous
  Country: CO (occurrence: CO)
  Receive Date: 20241213
  Receipt Date: 20250227
  Transmission Date: 20250408
  Serious: Yes (Hospitalization, Disabling, Other)
  Sender: REGENERON
  Company Number: CO-SA-2024SA365844

PATIENT
  Age: 78 Year
  Sex: Male

DRUGS (1)
  1. PRALUENT [Suspect]
     Active Substance: ALIROCUMAB
     Indication: Type IIa hyperlipidaemia
     Dosage: 150 MG, Q15D
     Route: 058
     Dates: start: 202402

REACTIONS (4)
  - Hip fracture [Unknown]
  - Accident [Unknown]
  - Fall [Unknown]
  - Mobility decreased [Not Recovered/Not Resolved]

NARRATIVE: CASE EVENT DATE: 20241111
